FAERS Safety Report 10186604 (Version 1)
Quarter: 2014Q2

REPORT INFORMATION
  Report Type: Report from Study
  Country: CA (occurrence: CA)
  Receive Date: 20140521
  Receipt Date: 20140521
  Transmission Date: 20141212
  Serious: Yes (Death)
  Sender: FDA-Public Use
  Company Number: CA-BAXTER-2014BAX026076

PATIENT
  Sex: 0

DRUGS (3)
  1. PROCYTOX CYCLOPHOSPHAMIDE TAB25MG [Suspect]
     Indication: PLASMA CELL LEUKAEMIA
     Route: 048
  2. BORTEZOMIB [Suspect]
     Indication: PLASMA CELL LEUKAEMIA
     Route: 042
  3. DEXAMETHASONE [Suspect]
     Indication: PLASMA CELL LEUKAEMIA
     Route: 065

REACTIONS (1)
  - Plasma cell leukaemia [Fatal]
